FAERS Safety Report 12240824 (Version 1)
Quarter: 2016Q2

REPORT INFORMATION
  Report Type: Spontaneous
  Country: DE (occurrence: DE)
  Receive Date: 20160406
  Receipt Date: 20160406
  Transmission Date: 20160815
  Serious: Yes (Life-Threatening, Hospitalization)
  Sender: FDA-Public Use
  Company Number: DE-AUROBINDO-AUR-APL-2016-04207

PATIENT
  Age: 78 Year
  Sex: Male
  Weight: 120 kg

DRUGS (2)
  1. METFORMIN [Suspect]
     Active Substance: METFORMIN HYDROCHLORIDE
     Indication: DIABETES MELLITUS
     Dosage: 2250 MG, SUFFICIENT QTY
     Route: 048
     Dates: start: 2010
  2. GLIMEPIRIDE. [Concomitant]
     Active Substance: GLIMEPIRIDE
     Indication: PRODUCT USED FOR UNKNOWN INDICATION
     Dosage: UNK
     Route: 065
     Dates: start: 2010

REACTIONS (4)
  - Prerenal failure [Recovering/Resolving]
  - Respiratory failure [Not Recovered/Not Resolved]
  - Lactic acidosis [Recovering/Resolving]
  - Anuria [Not Recovered/Not Resolved]

NARRATIVE: CASE EVENT DATE: 201603
